FAERS Safety Report 12841995 (Version 4)
Quarter: 2016Q4

REPORT INFORMATION
  Report Type: Report from Study
  Country: US (occurrence: US)
  Receive Date: 20161012
  Receipt Date: 20161029
  Transmission Date: 20170207
  Serious: Yes (Hospitalization)
  Sender: FDA-Public Use
  Company Number: US-B.I. PHARMACEUTICALS,INC./RIDGEFIELD-2016-BI-37311BP

PATIENT
  Sex: Male

DRUGS (3)
  1. OFEV [Suspect]
     Active Substance: NINTEDANIB
     Dosage: MISTAKENLY TOOK 3 MORE CAPSULES OF OFEV WITHIN 6 HOURS OF HIS USUAL DOSE AND MISTAKENLY TOOK 2 CAPSU
     Route: 048
  2. OFEV [Suspect]
     Active Substance: NINTEDANIB
     Indication: IDIOPATHIC PULMONARY FIBROSIS
     Route: 048
     Dates: start: 20160603, end: 20161010
  3. OFEV [Suspect]
     Active Substance: NINTEDANIB
     Route: 048
     Dates: start: 20160607

REACTIONS (29)
  - Blood magnesium abnormal [Unknown]
  - Gastrointestinal pain [Unknown]
  - Weight decreased [Unknown]
  - Gastrointestinal disorder [Unknown]
  - Dyspnoea [Unknown]
  - Nausea [Recovered/Resolved]
  - Aspiration [Unknown]
  - Blood calcium abnormal [Unknown]
  - Diarrhoea [Unknown]
  - Vomiting [Unknown]
  - Choking [Unknown]
  - Appetite disorder [Unknown]
  - Contusion [Unknown]
  - Abdominal pain upper [Recovered/Resolved]
  - Abdominal pain upper [Unknown]
  - Constipation [Recovered/Resolved]
  - Muscle spasms [Unknown]
  - Nausea [Unknown]
  - Cough [Unknown]
  - Pain [Recovered/Resolved]
  - Lung disorder [Unknown]
  - Accidental overdose [Unknown]
  - Dysgeusia [Not Recovered/Not Resolved]
  - Decreased appetite [Unknown]
  - Diarrhoea [Not Recovered/Not Resolved]
  - Fatigue [Unknown]
  - Asthenia [Unknown]
  - Secretion discharge [Unknown]
  - Productive cough [Unknown]
